FAERS Safety Report 25335476 (Version 2)
Quarter: 2025Q2

REPORT INFORMATION
  Report Type: Spontaneous
  Country: US (occurrence: US)
  Receive Date: 20250520
  Receipt Date: 20250617
  Transmission Date: 20250717
  Serious: Yes (Other)
  Sender: ROCHE
  Company Number: US-ROCHE-10000282763

PATIENT
  Sex: Female

DRUGS (1)
  1. LUCENTIS [Suspect]
     Active Substance: RANIBIZUMAB
     Indication: Neovascular age-related macular degeneration
     Route: 050

REACTIONS (6)
  - Blindness unilateral [Unknown]
  - Eye haemorrhage [Unknown]
  - Central vision loss [Unknown]
  - Neovascular age-related macular degeneration [Not Recovered/Not Resolved]
  - Emotional disorder [Unknown]
  - Eye disorder [Unknown]
